FAERS Safety Report 13361073 (Version 1)
Quarter: 2017Q1

REPORT INFORMATION
  Report Type: Spontaneous
  Country: ES (occurrence: ES)
  Receive Date: 20170322
  Receipt Date: 20170322
  Transmission Date: 20170429
  Serious: Yes (Other)
  Sender: FDA-Public Use
  Company Number: ES-009507513-1703ESP007005

PATIENT
  Age: 71 Year
  Sex: Female

DRUGS (17)
  1. ONCOTICE [Suspect]
     Active Substance: BACILLUS CALMETTE-GUERIN SUBSTRAIN TICE LIVE ANTIGEN
     Dosage: CYCLE 1, 2ND ADMINISTRATION
     Dates: start: 20151214, end: 20151214
  2. ONCOTICE [Suspect]
     Active Substance: BACILLUS CALMETTE-GUERIN SUBSTRAIN TICE LIVE ANTIGEN
     Dosage: CYCLE 1, 3RD ADMINISTRATION
     Dates: start: 20151221, end: 20151221
  3. ONCOTICE [Suspect]
     Active Substance: BACILLUS CALMETTE-GUERIN SUBSTRAIN TICE LIVE ANTIGEN
     Dosage: CYCLE 3, 11TH ADMINISTRATION
     Dates: start: 20160919, end: 20160919
  4. EUTIROX [Concomitant]
     Active Substance: LEVOTHYROXINE SODIUM
     Indication: HYPOTHYROIDISM
     Dosage: UNK
  5. ZARATOR [Concomitant]
     Active Substance: ATORVASTATIN CALCIUM
     Indication: BLOOD CHOLESTEROL INCREASED
     Dosage: UNK
  6. ONCOTICE [Suspect]
     Active Substance: BACILLUS CALMETTE-GUERIN SUBSTRAIN TICE LIVE ANTIGEN
     Indication: BLADDER CANCER
     Dosage: CYCLE 1, 1ST ADMINISTRATION
     Dates: start: 20151130, end: 20151130
  7. ONCOTICE [Suspect]
     Active Substance: BACILLUS CALMETTE-GUERIN SUBSTRAIN TICE LIVE ANTIGEN
     Dosage: CYCLE 1, 6TH ADMINISTRATION
     Dates: start: 20160111, end: 20160111
  8. ONCOTICE [Suspect]
     Active Substance: BACILLUS CALMETTE-GUERIN SUBSTRAIN TICE LIVE ANTIGEN
     Dosage: CYCLE 2, 7TH ADMINISTRATION
     Dates: start: 20160418, end: 20160418
  9. ONCOTICE [Suspect]
     Active Substance: BACILLUS CALMETTE-GUERIN SUBSTRAIN TICE LIVE ANTIGEN
     Dosage: CYCLE 2, 9TH ADMINISTRATION
     Dates: start: 20160502, end: 20160502
  10. ONCOTICE [Suspect]
     Active Substance: BACILLUS CALMETTE-GUERIN SUBSTRAIN TICE LIVE ANTIGEN
     Dosage: CYCLE 2, 8TH ADMINISTRATION
     Dates: start: 20160425, end: 20160425
  11. ONCOTICE [Suspect]
     Active Substance: BACILLUS CALMETTE-GUERIN SUBSTRAIN TICE LIVE ANTIGEN
     Dosage: CYCLE 4, 13TH ADMINISTRATION
     Dates: start: 20170302, end: 20170302
  12. ONCOTICE [Suspect]
     Active Substance: BACILLUS CALMETTE-GUERIN SUBSTRAIN TICE LIVE ANTIGEN
     Dosage: CYCLE 4, 14TH ADMINISTRATION
     Dates: start: 20170309, end: 20170309
  13. ZARATOR [Concomitant]
     Active Substance: ATORVASTATIN CALCIUM
     Indication: BRONCHITIS CHRONIC
  14. ONCOTICE [Suspect]
     Active Substance: BACILLUS CALMETTE-GUERIN SUBSTRAIN TICE LIVE ANTIGEN
     Dosage: CYCLE 3, 10TH ADMINISTRATION
     Dates: start: 20160912, end: 20160912
  15. ONCOTICE [Suspect]
     Active Substance: BACILLUS CALMETTE-GUERIN SUBSTRAIN TICE LIVE ANTIGEN
     Dosage: CYCLE 1, 5TH ADMINISTRATION
     Dates: start: 20160104, end: 20160104
  16. ONCOTICE [Suspect]
     Active Substance: BACILLUS CALMETTE-GUERIN SUBSTRAIN TICE LIVE ANTIGEN
     Dosage: CYCLE 3, 12TH ADMINISTRATION
     Dates: start: 20160926, end: 20160926
  17. ONCOTICE [Suspect]
     Active Substance: BACILLUS CALMETTE-GUERIN SUBSTRAIN TICE LIVE ANTIGEN
     Dosage: CYCLE 1, 4TH ADMINISTRATION
     Dates: start: 20151228, end: 20151228

REACTIONS (7)
  - Blood triglycerides increased [Unknown]
  - Pyrexia [Recovered/Resolved]
  - Somnolence [Unknown]
  - Incorrect drug administration duration [Unknown]
  - Bronchitis bacterial [Recovering/Resolving]
  - Incorrect drug administration duration [Unknown]
  - Inappropriate schedule of drug administration [Unknown]

NARRATIVE: CASE EVENT DATE: 20151130
